FAERS Safety Report 6876874-1 (Version None)
Quarter: 2010Q2

REPORT INFORMATION
  Report Type: 
  Country: None (occurrence: None)
  Receive Date: 20100616
  Receipt Date: 20100324
  Transmission Date: 20101027
  Serious: No
  Sender: FDA-Public Use
  Company Number: DSA_42841_2010

PATIENT
  Sex: Female

DRUGS (15)
  1. XENAZINE [Suspect]
     Indication: TARDIVE DYSKINESIA
     Dosage: 12.5 MG TID ORAL, 12.5 MG BID ORAL, 12.5 MG QD ORAL
     Route: 048
     Dates: start: 20100101, end: 20100301
  2. XENAZINE [Suspect]
     Indication: TARDIVE DYSKINESIA
     Dosage: 12.5 MG TID ORAL, 12.5 MG BID ORAL, 12.5 MG QD ORAL
     Route: 048
     Dates: start: 20100301, end: 20100321
  3. XENAZINE [Suspect]
     Indication: TARDIVE DYSKINESIA
     Dosage: 12.5 MG TID ORAL, 12.5 MG BID ORAL, 12.5 MG QD ORAL
     Route: 048
     Dates: start: 20100322
  4. ENHANCED ENERGY WHOLE FOOD MULTIVITAMIN [Concomitant]
  5. LORTAB [Concomitant]
  6. CLONAZEPAM [Concomitant]
  7. OSTEO BI-FLEX [Concomitant]
  8. VITAMIN D [Concomitant]
  9. VITAMIN B-12 [Concomitant]
  10. C-VITAMIN [Concomitant]
  11. CHLOROPHYLL [Concomitant]
  12. PAROXETINE HCL [Concomitant]
  13. PREMARIN [Concomitant]
  14. VOLTAREN [Concomitant]
  15. ASPIRIN [Concomitant]

REACTIONS (2)
  - IRRITABILITY [None]
  - MUSCLE SPASMS [None]
